FAERS Safety Report 10149542 (Version 2)
Quarter: 2014Q2

REPORT INFORMATION
  Report Type: Spontaneous
  Country: ES (occurrence: ES)
  Receive Date: 20140502
  Receipt Date: 20140515
  Transmission Date: 20141212
  Serious: Yes (Death, Hospitalization)
  Sender: FDA-Public Use
  Company Number: PHHY2014ES052974

PATIENT
  Sex: 0

DRUGS (9)
  1. GLIVEC [Suspect]
     Indication: GASTROINTESTINAL STROMAL TUMOUR
     Dosage: 400 MG, QD
     Route: 048
     Dates: start: 20140318, end: 20140328
  2. OMEPRAZOLE [Concomitant]
     Dosage: UNK UKN, UNK
  3. AMLODIPINE [Concomitant]
     Dosage: UNK UKN, UNK
  4. IRBESARTAN [Concomitant]
     Dosage: UNK UKN, UNK
  5. PENTOXIFILIN [Concomitant]
     Dosage: UNK UKN, UNK
  6. ATORVASTATIN [Concomitant]
     Dosage: UNK UKN, UNK
  7. LINAGLIPTIN [Concomitant]
     Dosage: UNK UKN, UNK
  8. NOVOMIX 30 [Concomitant]
     Dosage: UNK UKN, UNK
  9. BESITRAN [Concomitant]
     Dosage: UNK UKN, UNK

REACTIONS (3)
  - Cardiac failure [Fatal]
  - Respiratory distress [Fatal]
  - Nocturnal dyspnoea [Unknown]
